FAERS Safety Report 4772035-0 (Version None)
Quarter: 2005Q3

REPORT INFORMATION
  Report Type: 
  Country: None (occurrence: None)
  Receive Date: 20050916
  Receipt Date: 20030721
  Transmission Date: 20060218
  Serious: Yes (Death)
  Sender: FDA-Public Use
  Company Number: US-ABBOTT-03P-163-0225956-00

PATIENT
  Age: 61 Year
  Sex: Female
  Weight: 80.812 kg

DRUGS (9)
  1. HYDROCODONE [Suspect]
     Dates: end: 20020201
  2. BUTALBITAL [Suspect]
     Indication: DRUG USE FOR UNKNOWN INDICATION
     Dosage: NOT REPORTED
     Dates: end: 20020201
  3. OXYCODONE [Suspect]
     Indication: DRUG USE FOR UNKNOWN INDICATION
     Dosage: NOT REPORTED
     Dates: end: 20020201
  4. VALPROIC ACID [Suspect]
     Indication: DRUG USE FOR UNKNOWN INDICATION
     Dosage: NOT REPORTED
     Dates: end: 20020201
  5. AMITRIPTYLINE HCL [Suspect]
     Indication: DRUG USE FOR UNKNOWN INDICATION
     Dosage: NOT REPORTED
     Dates: end: 20020201
  6. NORTRIPTYLINE HCL [Suspect]
     Indication: DRUG USE FOR UNKNOWN INDICATION
     Dosage: NOT REPORTED
     Dates: end: 20020201
  7. CARISOPRODOL [Suspect]
     Indication: DRUG USE FOR UNKNOWN INDICATION
     Dosage: NOT REPORTED
     Dates: end: 20020201
  8. MEPROBAMATE [Suspect]
     Indication: DRUG USE FOR UNKNOWN INDICATION
     Dosage: NOT REPORTED
     Dates: end: 20020201
  9. DIPHENHYDRAMINE HCL [Suspect]
     Indication: DRUG USE FOR UNKNOWN INDICATION
     Dosage: NOT REPORTED
     Dates: end: 20020201

REACTIONS (4)
  - DRUG LEVEL INCREASED [None]
  - DRUG TOXICITY [None]
  - PULMONARY CONGESTION [None]
  - PULMONARY OEDEMA [None]
